FAERS Safety Report 10035184 (Version 3)
Quarter: 2014Q2

REPORT INFORMATION
  Report Type: Report from Study
  Country: US (occurrence: US)
  Receive Date: 20140325
  Receipt Date: 20140617
  Transmission Date: 20141212
  Serious: Yes (Death, Other)
  Sender: FDA-Public Use
  Company Number: US-ALEXION-A200700233

PATIENT
  Sex: 0

DRUGS (1)
  1. SOLIRIS [Suspect]
     Indication: PAROXYSMAL NOCTURNAL HAEMOGLOBINURIA
     Dosage: UNK
     Route: 042

REACTIONS (7)
  - Death [Fatal]
  - Device issue [Unknown]
  - Thrombosis [Unknown]
  - Infusion site haemorrhage [Unknown]
  - Crying [Unknown]
  - Feeling abnormal [Unknown]
  - Pain [Unknown]
